FAERS Safety Report 4271843-2 (Version None)
Quarter: 2004Q1

REPORT INFORMATION
  Report Type: 
  Country: None (occurrence: None)
  Receive Date: 20040115
  Receipt Date: 20030319
  Transmission Date: 20041129
  Serious: Yes (Disabling)
  Sender: FDA-Public Use
  Company Number: WAES 0303GBR00191

PATIENT
  Age: 64 Year
  Weight: 57 kg

DRUGS (1)
  1. FOSAMAX [Suspect]
     Indication: OSTEOPOROSIS PROPHYLAXIS
     Route: 048
     Dates: start: 20030128, end: 20030225

REACTIONS (3)
  - ARTHRALGIA [None]
  - MALAISE [None]
  - MYALGIA [None]
